FAERS Safety Report 12269591 (Version 2)
Quarter: 2016Q2

REPORT INFORMATION
  Report Type: Spontaneous
  Country: US (occurrence: US)
  Receive Date: 20160414
  Receipt Date: 20160627
  Transmission Date: 20160815
  Serious: Yes (Death, Hospitalization, Other)
  Sender: FDA-Public Use
  Company Number: US-ALEXION PHARMACEUTICALS INC-A201602534

PATIENT
  Sex: Female

DRUGS (1)
  1. SOLIRIS [Suspect]
     Active Substance: ECULIZUMAB
     Indication: HAEMOLYTIC URAEMIC SYNDROME
     Dosage: 300 MG, EVERY 24 HOURS, ONE TIME ONLY
     Route: 042
     Dates: start: 20160402

REACTIONS (3)
  - Inappropriate schedule of drug administration [Unknown]
  - Septic shock [Fatal]
  - Sepsis [Unknown]
